FAERS Safety Report 6091882-9 (Version None)
Quarter: 2009Q1

REPORT INFORMATION
  Report Type: 
  Country: None (occurrence: None)
  Receive Date: 20090225
  Receipt Date: 20080919
  Transmission Date: 20090719
  Serious: No
  Sender: FDA-Public Use
  Company Number: A0747077A

PATIENT
  Age: 42 Year
  Sex: Female

DRUGS (3)
  1. VALTREX [Suspect]
     Indication: GENITAL HERPES
     Dosage: 1G PER DAY
     Route: 048
     Dates: start: 20080723, end: 20080827
  2. TETRACYCLINE [Concomitant]
  3. MACROBID [Concomitant]

REACTIONS (3)
  - CHILLS [None]
  - PYREXIA [None]
  - WHITE BLOOD CELL COUNT INCREASED [None]
